FAERS Safety Report 8793030 (Version 1)
Quarter: 2012Q4

REPORT INFORMATION
  Report Type: 
  Country: US (occurrence: US)
  Receive Date: 20120917
  Receipt Date: 20120917
  Transmission Date: 20130627
  Serious: Yes (Other)
  Sender: FDA-Public Use
  Company Number: US-JNJFOC-20120904329

PATIENT
  Sex: Male

DRUGS (3)
  1. NUCYNTA IR [Suspect]
     Indication: PAIN
     Route: 065
     Dates: start: 201208
  2. NUCYNTA ER [Suspect]
     Indication: PAIN
     Route: 065
     Dates: start: 201208
  3. LYRICA [Suspect]
     Indication: BACK PAIN
     Route: 065
     Dates: start: 201208, end: 201209

REACTIONS (2)
  - Depression [Unknown]
  - Suicidal ideation [Unknown]
